FAERS Safety Report 9639709 (Version 2)
Quarter: 2013Q4

REPORT INFORMATION
  Report Type: Spontaneous
  Country: FR (occurrence: FR)
  Receive Date: 20131023
  Receipt Date: 20131202
  Transmission Date: 20140711
  Serious: Yes (Hospitalization, Disabling)
  Sender: FDA-Public Use
  Company Number: FR-ROCHE-1292372

PATIENT
  Sex: Female

DRUGS (6)
  1. LUCENTIS [Suspect]
     Indication: PRODUCT USED FOR UNKNOWN INDICATION
     Route: 050
     Dates: start: 20130528
  2. LUCENTIS [Suspect]
     Route: 050
     Dates: start: 20130604
  3. CORTANCYL [Concomitant]
  4. LEVOTHYROX [Concomitant]
  5. EXELON [Concomitant]
     Route: 065
     Dates: end: 201209
  6. MACUGEN [Concomitant]
     Route: 065
     Dates: start: 20130717

REACTIONS (1)
  - Cerebrovascular accident [Recovering/Resolving]
